FAERS Safety Report 11432862 (Version 2)
Quarter: 2015Q4

REPORT INFORMATION
  Report Type: Spontaneous
  Country: US (occurrence: US)
  Receive Date: 20150828
  Receipt Date: 20151001
  Transmission Date: 20160304
  Serious: No
  Sender: FDA-Public Use
  Company Number: US-GLAXOSMITHKLINE-US2015122818

PATIENT
  Age: 67 Year
  Sex: Male

DRUGS (10)
  1. ANORO ELLIPTA [Suspect]
     Active Substance: UMECLIDINIUM BROMIDE\VILANTEROL TRIFENATATE
     Indication: RESPIRATORY DISORDER
     Dosage: 1 PUFF(S), QD
     Route: 055
     Dates: start: 20150826
  2. ASPIRIN. [Concomitant]
     Active Substance: ASPIRIN
  3. ISOSORBIDE MONONITRATE MODIFIED-RELEASE TABLET [Concomitant]
  4. CLOPIDOGREL [Concomitant]
     Active Substance: CLOPIDOGREL BISULFATE
  5. METOPROLOL [Concomitant]
     Active Substance: METOPROLOL
  6. VYTORIN [Concomitant]
     Active Substance: EZETIMIBE\SIMVASTATIN
  7. ANORO ELLIPTA [Suspect]
     Active Substance: UMECLIDINIUM BROMIDE\VILANTEROL TRIFENATATE
     Indication: DYSPNOEA
     Dosage: 1 PUFF(S), QD
     Route: 055
     Dates: start: 20150826
  8. AMLODIPINE BESYLATE. [Concomitant]
     Active Substance: AMLODIPINE BESYLATE
  9. NEXIUM [Concomitant]
     Active Substance: ESOMEPRAZOLE MAGNESIUM
  10. VALSARTAN/HYDROCHLOROTHIAZIDE [Concomitant]
     Active Substance: HYDROCHLOROTHIAZIDE\VALSARTAN

REACTIONS (3)
  - Insomnia [Not Recovered/Not Resolved]
  - Dyspnoea [Unknown]
  - Drug effect incomplete [Unknown]

NARRATIVE: CASE EVENT DATE: 20150911
